FAERS Safety Report 8614543-8 (Version None)
Quarter: 2012Q3

REPORT INFORMATION
  Report Type: 
  Country: None (occurrence: None)
  Receive Date: 20120823
  Receipt Date: 20120820
  Transmission Date: 20120928
  Serious: Yes (Hospitalization)
  Sender: FDA-Public Use
  Company Number: PHEH2012US016466

PATIENT
  Age: 51 Year
  Sex: Female

DRUGS (8)
  1. NIASPAN [Concomitant]
  2. ZOCOR [Concomitant]
  3. COUMADIN [Concomitant]
  4. TASIGNA [Suspect]
     Indication: CHRONIC MYELOID LEUKAEMIA
     Dosage: 400 MG, BID
     Route: 048
     Dates: start: 20120726
  5. COREG [Concomitant]
  6. ASPIRIN [Concomitant]
  7. METFORMIN [Concomitant]
  8. ALLOPURINOL [Concomitant]

REACTIONS (1)
  - DYSPNOEA [None]
